FAERS Safety Report 5248252-2 (Version None)
Quarter: 2007Q1

REPORT INFORMATION
  Report Type: 
  Country: None (occurrence: None)
  Receive Date: 20070227
  Receipt Date: 20060824
  Transmission Date: 20070707
  Serious: No
  Sender: FDA-Public Use
  Company Number: US-BRISTOL-MYERS SQUIBB COMPANY-13519525

PATIENT
  Age: 72 Year
  Sex: Female
  Weight: 82 kg

DRUGS (3)
  1. GLUCOPHAGE [Suspect]
     Indication: DIABETES MELLITUS NON-INSULIN-DEPENDENT
     Route: 048
  2. BYETTA [Suspect]
     Indication: DIABETES MELLITUS NON-INSULIN-DEPENDENT
     Route: 058
     Dates: start: 20060724
  3. BYETTA [Suspect]
     Route: 058
     Dates: start: 20060624, end: 20060723

REACTIONS (3)
  - BLOOD GLUCOSE INCREASED [None]
  - DRUG INEFFECTIVE [None]
  - WEIGHT DECREASED [None]
